FAERS Safety Report 5572140-5 (Version None)
Quarter: 2007Q4

REPORT INFORMATION
  Report Type: 
  Country: None (occurrence: None)
  Receive Date: 20071221
  Receipt Date: 20071211
  Transmission Date: 20080405
  Serious: Yes (Life-Threatening, Hospitalization, Disabling)
  Sender: FDA-Public Use
  Company Number: DE-ABBOTT-07P-062-0428381-00

PATIENT
  Sex: Male
  Weight: 63 kg

DRUGS (2)
  1. KALETRA [Suspect]
     Indication: HIV INFECTION
     Dosage: 200 MG/50 MG
     Route: 048
     Dates: start: 20070604
  2. LAMIVUDINE + ZIDOVUDINE [Concomitant]
     Indication: HIV INFECTION

REACTIONS (6)
  - CONVULSION [None]
  - EPILEPSY [None]
  - IMMUNE RECONSTITUTION SYNDROME [None]
  - RHABDOMYOLYSIS [None]
  - SPEECH DISORDER [None]
  - VISUAL FIELD DEFECT [None]
